FAERS Safety Report 5797329-1 (Version None)
Quarter: 2008Q2

REPORT INFORMATION
  Report Type: 
  Country: None (occurrence: None)
  Receive Date: 20080627
  Receipt Date: 20080618
  Transmission Date: 20081010
  Serious: Yes (Hospitalization)
  Sender: FDA-Public Use
  Company Number: SPV1-2008-01342

PATIENT
  Age: 29 Year
  Sex: Female

DRUGS (2)
  1. ADDERALL XR 30 [Suspect]
     Indication: ATTENTION DEFICIT/HYPERACTIVITY DISORDER
     Dosage: 10 MG,
     Dates: start: 20070501
  2. CONTRACEPTIVES NOS [Concomitant]

REACTIONS (1)
  - PERIPHERAL ISCHAEMIA [None]
